FAERS Safety Report 8215441-4 (Version None)
Quarter: 2012Q1

REPORT INFORMATION
  Report Type: 
  Country: None (occurrence: None)
  Receive Date: 20120316
  Receipt Date: 20120213
  Transmission Date: 20120608
  Serious: Yes (Hospitalization)
  Sender: FDA-Public Use
  Company Number: US-ROCHE-1008278

PATIENT
  Sex: Male
  Weight: 95.34 kg

DRUGS (4)
  1. LOPRESSOR [Concomitant]
     Indication: HEART RATE INCREASED
     Route: 048
     Dates: start: 20111101
  2. SYNTHROID [Concomitant]
     Indication: HYPOTHYROIDISM
     Route: 048
  3. ZELBORAF [Suspect]
     Indication: MALIGNANT MELANOMA
     Route: 048
     Dates: end: 20111209
  4. LIPITOR [Concomitant]
     Indication: BLOOD CHOLESTEROL INCREASED
     Route: 048
     Dates: end: 20110908

REACTIONS (10)
  - SUNBURN [None]
  - OCULAR HYPERAEMIA [None]
  - NIGHT SWEATS [None]
  - HEADACHE [None]
  - HEART RATE INCREASED [None]
  - ALOPECIA [None]
  - HYPERHIDROSIS [None]
  - VENTRICULAR TACHYCARDIA [None]
  - EYE PAIN [None]
  - FATIGUE [None]
